FAERS Safety Report 9419768 (Version 1)
Quarter: 2013Q3

REPORT INFORMATION
  Report Type: Spontaneous
  Country: US (occurrence: None)
  Receive Date: 20130723
  Receipt Date: 20130723
  Transmission Date: 20140515
  Serious: Yes (Other)
  Sender: FDA-Public Use
  Company Number: CIO13039922

PATIENT
  Sex: Female

DRUGS (1)
  1. ZZZQUIL [Suspect]
     Indication: INSOMNIA
     Route: 048
     Dates: start: 20130707, end: 20130707

REACTIONS (4)
  - Convulsion [None]
  - Anxiety [None]
  - Alcohol withdrawal syndrome [None]
  - Inappropriate schedule of drug administration [None]
